FAERS Safety Report 23550306 (Version 1)
Quarter: 2024Q1

REPORT INFORMATION
  Report Type: Spontaneous
  Country: US (occurrence: None)
  Receive Date: 20240221
  Receipt Date: 20240221
  Transmission Date: 20240410
  Serious: Yes (Hospitalization)
  Sender: FDA-Public Use
  Company Number: None

PATIENT
  Age: 65 Year
  Sex: Male

DRUGS (1)
  1. TYMLOS [Suspect]
     Active Substance: ABALOPARATIDE
     Indication: Osteoporosis
     Dosage: FREQUENCY : DAILY;?
     Route: 058

REACTIONS (7)
  - Thrombosis [None]
  - Sepsis [None]
  - Atrial fibrillation [None]
  - Blood pressure decreased [None]
  - Back pain [None]
  - Urinary tract infection [None]
  - Clostridium test positive [None]
